FAERS Safety Report 7454313-X (Version None)
Quarter: 2011Q2

REPORT INFORMATION
  Report Type: 
  Country: None (occurrence: None)
  Receive Date: 20110503
  Receipt Date: 20110420
  Transmission Date: 20111010
  Serious: Yes (Hospitalization)
  Sender: FDA-Public Use
  Company Number: US-BAYER-201026347NA

PATIENT
  Age: 26 Year
  Sex: Female
  Weight: 97.506 kg

DRUGS (2)
  1. YAZ [Suspect]
     Indication: MENSTRUAL CYCLE MANAGEMENT
     Dosage: UNK UNK, QD
     Route: 048
     Dates: start: 20080104, end: 20080512
  2. YAZ [Suspect]
     Indication: ORAL CONTRACEPTION

REACTIONS (3)
  - PAIN [None]
  - OEDEMA PERIPHERAL [None]
  - DEEP VEIN THROMBOSIS [None]
